FAERS Safety Report 6317990-2 (Version None)
Quarter: 2009Q3

REPORT INFORMATION
  Report Type: 
  Country: None (occurrence: None)
  Receive Date: 20090821
  Receipt Date: 20090812
  Transmission Date: 20100115
  Serious: Yes (Hospitalization, Disabling)
  Sender: FDA-Public Use
  Company Number: FR-PFIZER INC-2008003965

PATIENT
  Age: 50 Year

DRUGS (13)
  1. MARAVIROC [Suspect]
     Indication: HIV INFECTION
     Dosage: 300 MG, 2X/DAY
     Route: 048
     Dates: start: 20060331
  2. ISENTRESS [Suspect]
     Indication: HIV INFECTION
     Dosage: 400 MG, 2X/DAY
     Route: 048
     Dates: start: 20071018
  3. TIPRANAVIR [Concomitant]
     Indication: HIV INFECTION
     Dosage: BID: EVERY OTHER DAY
     Route: 048
     Dates: start: 20060331
  4. RITONAVIR [Concomitant]
     Indication: HIV INFECTION
     Dosage: BID: EVERY OTHER DAY
     Route: 048
     Dates: start: 20060331
  5. TRUVADA [Concomitant]
     Indication: HIV INFECTION
     Dosage: 1 DF, 1X/DAY
     Route: 048
     Dates: start: 20070525
  6. ZELITREX [Concomitant]
     Dosage: 500 MG, 1X/DAY
     Route: 048
     Dates: start: 20070608
  7. LYRICA [Concomitant]
     Route: 048
     Dates: start: 20070525
  8. UTEPLEX [Concomitant]
     Route: 048
     Dates: start: 20070525
  9. ANSATIPIN [Concomitant]
     Route: 048
     Dates: start: 20071123
  10. PIRILENE [Concomitant]
     Route: 048
     Dates: start: 20071123
  11. RIMIFON [Concomitant]
     Route: 048
     Dates: start: 20071123
  12. BACTRIM [Concomitant]
     Route: 048
     Dates: start: 20071031
  13. IBUPROFEN [Concomitant]
     Dosage: UNK MG, 2X/DAY
     Route: 048
     Dates: start: 20071203, end: 20080108

REACTIONS (1)
  - HODGKIN'S DISEASE [None]
